FAERS Safety Report 7291296-X (Version None)
Quarter: 2011Q1

REPORT INFORMATION
  Report Type: 
  Country: None (occurrence: None)
  Receive Date: 20110202
  Receipt Date: 20110120
  Transmission Date: 20110831
  Serious: Yes (Hospitalization)
  Sender: FDA-Public Use
  Company Number: 2011MA000516

PATIENT
  Age: 39 Year
  Sex: Female

DRUGS (4)
  1. CON MEDS [Concomitant]
  2. SERTRALINE HYDROCHLORIDE [Suspect]
     Indication: BIPOLAR DISORDER
     Dosage: 200 MG; PO
     Route: 048
  3. PREV MEDS [Concomitant]
  4. SEOQUEL (QUETIAPINE FUMARATE) [Suspect]
     Indication: BIPOLAR DISORDER
     Dosage: 200 MG; PO
     Route: 048

REACTIONS (5)
  - DRUG EXPOSURE DURING PREGNANCY [None]
  - PROLONGED PREGNANCY [None]
  - PREGNANCY [None]
  - HYPOTHYROIDISM [None]
  - CAESAREAN SECTION [None]
